FAERS Safety Report 5078736-1 (Version None)
Quarter: 2006Q3

REPORT INFORMATION
  Report Type: 
  Country: None (occurrence: None)
  Receive Date: 20060808
  Receipt Date: 20060726
  Transmission Date: 20061208
  Serious: Yes (Hospitalization)
  Sender: FDA-Public Use
  Company Number: 163-21880-06030802

PATIENT
  Age: 68 Year
  Sex: Female

DRUGS (5)
  1. REVLIMID [Suspect]
     Indication: MYELODYSPLASTIC SYNDROME
     Dosage: 1 IN 1 D, ORAL
     Route: 048
     Dates: start: 20060225, end: 20060606
  2. LEVAQUIN [Concomitant]
  3. PREDNISONE [Concomitant]
  4. PROTONIX [Concomitant]
  5. ARANESP [Concomitant]

REACTIONS (8)
  - CONTUSION [None]
  - EPISTAXIS [None]
  - FOLLICULITIS [None]
  - HAEMOGLOBIN DECREASED [None]
  - MYOCARDIAL INFARCTION [None]
  - PLATELET COUNT DECREASED [None]
  - VENTRICULAR HYPERTROPHY [None]
  - WHITE BLOOD CELL COUNT DECREASED [None]
